FAERS Safety Report 5593153-3 (Version None)
Quarter: 2008Q1

REPORT INFORMATION
  Report Type: 
  Country: None (occurrence: None)
  Receive Date: 20080114
  Receipt Date: 20080114
  Transmission Date: 20080703
  Serious: Yes (Other)
  Sender: FDA-Public Use
  Company Number: None

PATIENT
  Age: 33 Year
  Sex: Male
  Weight: 95.2554 kg

DRUGS (1)
  1. ZITHROMAX [Suspect]
     Indication: INFECTION
     Dosage: 1 BOTTLE 1 PO
     Route: 048
     Dates: start: 20060517, end: 20060520

REACTIONS (2)
  - DYSPEPSIA [None]
  - IRRITABLE BOWEL SYNDROME [None]
